FAERS Safety Report 5513735-4 (Version None)
Quarter: 2007Q4

REPORT INFORMATION
  Report Type: 
  Country: None (occurrence: None)
  Receive Date: 20071113
  Receipt Date: 20071105
  Transmission Date: 20080405
  Serious: Yes (Hospitalization, Other)
  Sender: FDA-Public Use
  Company Number: PHBS2007JP12866

PATIENT
  Age: 77 Year
  Sex: Female

DRUGS (7)
  1. ZOMETA [Suspect]
     Indication: MULTIPLE MYELOMA
     Dosage: 2 MG, UNK
     Route: 042
     Dates: start: 20070327, end: 20070426
  2. PREDONINE [Suspect]
     Indication: GENERAL PHYSICAL HEALTH DETERIORATION
     Dates: start: 20070426, end: 20070101
  3. FAMOTIDINE [Concomitant]
     Route: 048
     Dates: start: 20040101, end: 20070727
  4. NU-LOTAN [Concomitant]
     Route: 048
     Dates: start: 20040101, end: 20070727
  5. PRAVASTATIN [Concomitant]
     Route: 048
     Dates: start: 20040101, end: 20070727
  6. SOLANAX [Concomitant]
     Route: 048
     Dates: start: 20040101, end: 20070727
  7. LASIX [Concomitant]
     Route: 048
     Dates: start: 20040101, end: 20070727

REACTIONS (19)
  - BLOOD CREATININE INCREASED [None]
  - BLOOD UREA INCREASED [None]
  - C-REACTIVE PROTEIN INCREASED [None]
  - EATING DISORDER [None]
  - HAEMATOCRIT DECREASED [None]
  - HAEMOGLOBIN DECREASED [None]
  - JOINT SWELLING [None]
  - MULTIPLE MYELOMA [None]
  - OEDEMA PERIPHERAL [None]
  - ORAL PAIN [None]
  - OSTEOLYSIS [None]
  - OSTEOMYELITIS [None]
  - PLATELET COUNT DECREASED [None]
  - PURULENT DISCHARGE [None]
  - RED BLOOD CELL COUNT DECREASED [None]
  - STOMATITIS [None]
  - STREPTOCOCCAL INFECTION [None]
  - TOOTH DECALCIFICATION [None]
  - WHITE BLOOD CELL COUNT INCREASED [None]
